FAERS Safety Report 7717378-3 (Version None)
Quarter: 2011Q3

REPORT INFORMATION
  Report Type: 
  Country: None (occurrence: None)
  Receive Date: 20110823
  Receipt Date: 20110614
  Transmission Date: 20111222
  Serious: Yes (Hospitalization)
  Sender: FDA-Public Use
  Company Number: 20110614CINRY2056

PATIENT
  Age: 16 Year
  Sex: Female

DRUGS (4)
  1. CINRYZE [Suspect]
     Indication: PROPHYLAXIS
     Dosage: INTRAVENOUS, (2 IN 1 WK), INTRAVENOUS
     Route: 042
     Dates: start: 20110613
  2. CINRYZE [Suspect]
     Indication: HEREDITARY ANGIOEDEMA
     Dosage: INTRAVENOUS, (2 IN 1 WK), INTRAVENOUS
     Route: 042
     Dates: start: 20110613
  3. CINRYZE [Suspect]
     Indication: PROPHYLAXIS
     Dosage: INTRAVENOUS, (2 IN 1 WK), INTRAVENOUS
     Route: 042
     Dates: start: 20101001
  4. CINRYZE [Suspect]
     Indication: HEREDITARY ANGIOEDEMA
     Dosage: INTRAVENOUS, (2 IN 1 WK), INTRAVENOUS
     Route: 042
     Dates: start: 20101001

REACTIONS (1)
  - HEREDITARY ANGIOEDEMA [None]
